FAERS Safety Report 14073973 (Version 1)
Quarter: 2017Q4

REPORT INFORMATION
  Report Type: Spontaneous
  Country: GB (occurrence: GB)
  Receive Date: 20171011
  Receipt Date: 20171011
  Transmission Date: 20180321
  Serious: Yes (Other)
  Sender: FDA-Public Use
  Company Number: GB-PFIZER INC-2017431747

PATIENT
  Sex: Female

DRUGS (1)
  1. MINODIAB [Suspect]
     Active Substance: GLIPIZIDE
     Dosage: 5 MG, UNK

REACTIONS (1)
  - Cerebrovascular accident [Recovering/Resolving]
